FAERS Safety Report 25705543 (Version 1)
Quarter: 2025Q3

REPORT INFORMATION
  Report Type: Spontaneous
  Country: US (occurrence: None)
  Receive Date: 20250819
  Receipt Date: 20250819
  Transmission Date: 20251020
  Serious: No
  Sender: FDA-CTU
  Company Number: None

PATIENT
  Age: 90 Year
  Sex: Male
  Weight: 73.35 kg

DRUGS (9)
  1. FUROSEMIDE [Suspect]
     Active Substance: FUROSEMIDE
     Indication: Oedema peripheral
     Dosage: 1 TABLET DAILY ORAL ?
     Route: 048
     Dates: start: 20250731, end: 20250810
  2. FUROSEMIDE [Suspect]
     Active Substance: FUROSEMIDE
     Indication: Oedema peripheral
  3. amLodipne 5 mg [Concomitant]
  4. carbidopa levodopa 25-100mg [Concomitant]
  5. Leuprolide ll.25 injection every 6 mos. [Concomitant]
  6. LOSARTAN [Concomitant]
     Active Substance: LOSARTAN
  7. hydrochlorothiazide 100-12.5mg Prolia 60mg every 6 mos. [Concomitant]
  8. TIMOLOL MALEATE [Concomitant]
     Active Substance: TIMOLOL MALEATE
  9. ATENOLOL [Concomitant]
     Active Substance: ATENOLOL

REACTIONS (4)
  - Dysphagia [None]
  - Dysphonia [None]
  - Decreased appetite [None]
  - Urine analysis abnormal [None]

NARRATIVE: CASE EVENT DATE: 20250810
